FAERS Safety Report 24937634 (Version 3)
Quarter: 2025Q1

REPORT INFORMATION
  Report Type: Spontaneous
  Country: US (occurrence: US)
  Receive Date: 20250206
  Receipt Date: 20250312
  Transmission Date: 20250409
  Serious: Yes (Hospitalization)
  Sender: VERTEX
  Company Number: US-VERTEX PHARMACEUTICALS-2025-001876

PATIENT
  Age: 3 Year
  Sex: Female

DRUGS (3)
  1. TRIKAFTA [Suspect]
     Active Substance: ELEXACAFTOR\IVACAFTOR\TEZACAFTOR
     Indication: Cystic fibrosis
     Dosage: 1 PKT AM; 1 PKT PM
     Route: 048
     Dates: start: 202404
  2. PULMOZYME [Concomitant]
     Active Substance: DORNASE ALFA
  3. ALBUTEROL [Concomitant]
     Active Substance: ALBUTEROL

REACTIONS (2)
  - Intestinal pseudo-obstruction [Recovered/Resolved]
  - Gastroenteritis astroviral [Recovered/Resolved]

NARRATIVE: CASE EVENT DATE: 20250125
